FAERS Safety Report 11784866 (Version 1)
Quarter: 2015Q4

REPORT INFORMATION
  Report Type: Report from Study
  Country: GB (occurrence: GB)
  Receive Date: 20151130
  Receipt Date: 20151130
  Transmission Date: 20160305
  Serious: Yes (Hospitalization)
  Sender: FDA-Public Use
  Company Number: GB-ROCHE-1669118

PATIENT
  Sex: Female
  Weight: 48 kg

DRUGS (8)
  1. CODEIN [Concomitant]
     Active Substance: CODEINE
     Dosage: PRN 4 HOURLY, MAX X4. CAN BE TAKEN IN ADDITION TO THE REGULAR 15 MG CODIENE FOUR TIMES DAILY. NOT ON
     Route: 048
  2. RITUXIMAB [Suspect]
     Active Substance: RITUXIMAB
     Indication: RHEUMATOID ARTHRITIS
     Route: 042
     Dates: start: 20091015
  3. METHOTREXATE [Concomitant]
     Active Substance: METHOTREXATE
     Dosage: SUNDAYS ONLY; QUANTITY DISPENDED:  3X2.5 MG.
     Route: 048
  4. OMEPRAZOLE. [Concomitant]
     Active Substance: OMEPRAZOLE
     Dosage: QUANTITY DISPENDED: 28X20 MG.
     Route: 048
  5. FOLIC ACID. [Concomitant]
     Active Substance: FOLIC ACID
     Dosage: QUANTITY DISPENDED: 28X5 MG.
     Route: 048
  6. ASPIRIN. [Concomitant]
     Active Substance: ASPIRIN
     Dosage: DISPENSABLE TABLET; QUANTITY DISPENDED: 28X75 MG.
     Route: 048
  7. ATENOLOL. [Concomitant]
     Active Substance: ATENOLOL
     Dosage: QUANTITY DISPENDED: 28X50 MG.
     Route: 048
  8. LAXIDO [Concomitant]
     Active Substance: POLYETHYLENE GLYCOL 3350\POTASSIUM CHLORIDE\SODIUM BICARBONATE\SODIUM CHLORIDE
     Dosage: 1 SACHET; QUANTITY DISPENDED: 20
     Route: 048

REACTIONS (1)
  - Fall [Unknown]
